FAERS Safety Report 6093574-9 (Version None)
Quarter: 2009Q1

REPORT INFORMATION
  Report Type: 
  Country: None (occurrence: None)
  Receive Date: 20090226
  Receipt Date: 20090213
  Transmission Date: 20090719
  Serious: Yes (Hospitalization)
  Sender: FDA-Public Use
  Company Number: GB-PFIZER INC-2009164479

PATIENT

DRUGS (6)
  1. BLINDED *PLACEBO [Suspect]
     Indication: NON-SMALL CELL LUNG CANCER METASTATIC
     Dosage: 37.5 MG, 1X/DAY
     Route: 048
     Dates: start: 20081215
  2. BLINDED SUNITINIB MALATE [Suspect]
     Indication: NON-SMALL CELL LUNG CANCER METASTATIC
     Dosage: 37.5 MG, 1X/DAY
     Route: 048
     Dates: start: 20081215
  3. *ERLOTINIB [Suspect]
     Indication: NON-SMALL CELL LUNG CANCER METASTATIC
     Dosage: 150 MG, 1X/DAY
     Route: 048
     Dates: start: 20081215
  4. OMEPRAZOLE [Concomitant]
     Indication: PROPHYLAXIS
     Dosage: 40 MG, 1X/DAY
     Dates: start: 20081128
  5. CYCLIZINE [Concomitant]
     Indication: NAUSEA
     Dosage: 150 MG, SINGLE
     Route: 058
     Dates: start: 20090127, end: 20090128
  6. NOZINAN [Concomitant]
     Indication: NAUSEA
     Dosage: 12.5 MG, SINGLE
     Route: 058
     Dates: start: 20090127, end: 20090128

REACTIONS (1)
  - ASCITES [None]
